FAERS Safety Report 5408564-6 (Version None)
Quarter: 2007Q3

REPORT INFORMATION
  Report Type: 
  Country: None (occurrence: None)
  Receive Date: 20070808
  Receipt Date: 20070730
  Transmission Date: 20080115
  Serious: Yes (Hospitalization)
  Sender: FDA-Public Use
  Company Number: JP-ASTRAZENECA-2007AP04426

PATIENT
  Age: 26322 Day
  Sex: Female
  Weight: 67.8 kg

DRUGS (10)
  1. CRESTOR [Suspect]
     Indication: HYPERCHOLESTEROLAEMIA
     Route: 048
     Dates: start: 20070707, end: 20070717
  2. CRESTOR [Suspect]
     Indication: HYPERLIPIDAEMIA
     Route: 048
     Dates: start: 20070707, end: 20070717
  3. CANDESARTAN CILEXETIL [Suspect]
     Indication: HYPERTENSION
     Route: 048
     Dates: start: 20070707
  4. CANDESARTAN CILEXETIL [Suspect]
     Indication: ANGINA PECTORIS
     Route: 048
     Dates: start: 20070707
  5. AMLODIPINE [Suspect]
     Indication: HYPERTENSION
     Route: 048
     Dates: start: 20070707
  6. AMLODIPINE [Suspect]
     Indication: ANGINA PECTORIS
     Route: 048
     Dates: start: 20070707
  7. LIPITOR [Concomitant]
     Route: 048
     Dates: end: 20070706
  8. ADALAT [Concomitant]
     Route: 048
  9. NITOROL R [Concomitant]
     Indication: HYPERTENSION
     Route: 048
     Dates: start: 19920710
  10. NITOROL R [Concomitant]
     Indication: ANGINA PECTORIS
     Route: 048
     Dates: start: 19920710

REACTIONS (1)
  - CHOLESTASIS [None]
